FAERS Safety Report 5123647-6 (Version None)
Quarter: 2006Q4

REPORT INFORMATION
  Report Type: 
  Country: None (occurrence: None)
  Receive Date: 20060910
  Receipt Date: 20060531
  Transmission Date: 20070319
  Serious: Yes (Other)
  Sender: FDA-Public Use
  Company Number: US_011075703

PATIENT
  Sex: Female

DRUGS (4)
  1. HUMULIN N [Suspect]
     Indication: DIABETES MELLITUS
     Dosage: SUBCUTANEOUS
     Route: 058
  2. HUMULIN N [Suspect]
  3. HUMULIN N [Suspect]
  4. INSULIN ANIMAL(INSULIN ANIMAL VIAL) [Suspect]
     Indication: DIABETES MELLITUS
     Route: 058

REACTIONS (3)
  - CHEST PAIN [None]
  - EYE HAEMORRHAGE [None]
  - VISUAL ACUITY REDUCED [None]
